FAERS Safety Report 7440838-X (Version None)
Quarter: 2011Q2

REPORT INFORMATION
  Report Type: 
  Country: None (occurrence: None)
  Receive Date: 20110427
  Receipt Date: 20110421
  Transmission Date: 20111010
  Serious: Yes (Death, Life-Threatening, Other)
  Sender: FDA-Public Use
  Company Number: JP-CEPHALON-2011001627

PATIENT
  Age: 76 Year
  Sex: Male
  Weight: 57 kg

DRUGS (10)
  1. VALACYCLOVIR HCL [Concomitant]
     Dates: start: 20110119
  2. SULFAMETHOXAZOLE AND TRIMETHOPRIM [Concomitant]
     Dates: start: 20101001
  3. LENOGRASTIM [Concomitant]
     Dates: start: 20110214, end: 20110327
  4. DEXAMETHASONE [Concomitant]
     Dates: start: 20110119
  5. BENDAMUSTINE HCL [Suspect]
     Route: 042
     Dates: start: 20110222, end: 20110222
  6. BETAMETHASONE [Concomitant]
     Dates: start: 20101001
  7. BENDAMUSTINE HCL [Suspect]
     Indication: B-CELL LYMPHOMA
     Route: 042
     Dates: start: 20110119, end: 20110120
  8. MEROPENEM [Concomitant]
     Dates: start: 20110317, end: 20110322
  9. AMPHOTERICIN B [Concomitant]
     Dates: start: 20101001
  10. GRANISETRON HCL [Concomitant]
     Dates: start: 20110119

REACTIONS (4)
  - HYPERKALAEMIA [None]
  - FEBRILE NEUTROPENIA [None]
  - NEUTROPHIL COUNT DECREASED [None]
  - PLATELET COUNT DECREASED [None]
